FAERS Safety Report 9188903 (Version 1)
Quarter: 2013Q1

REPORT INFORMATION
  Report Type: Spontaneous
  Country: US (occurrence: US)
  Receive Date: 20130326
  Receipt Date: 20130326
  Transmission Date: 20140127
  Serious: Yes (Hospitalization)
  Sender: FDA-Public Use
  Company Number: US-B.I. PHARMACEUTICALS,INC./RIDGEFIELD-2013-BI-07659BP

PATIENT
  Sex: Female
  Weight: 59 kg

DRUGS (2)
  1. COMBIVENT [Suspect]
     Indication: CHRONIC OBSTRUCTIVE PULMONARY DISEASE
     Dosage: 2 PUF
     Route: 055
     Dates: start: 2000
  2. CLONIDINE [Concomitant]
     Indication: HYPERTENSION
     Dosage: 0.2 MG
     Route: 048
     Dates: start: 1998

REACTIONS (5)
  - Angina pectoris [Not Recovered/Not Resolved]
  - Respiratory failure [Recovered/Resolved]
  - Rash macular [Recovered/Resolved]
  - Ocular hyperaemia [Not Recovered/Not Resolved]
  - Tremor [Not Recovered/Not Resolved]
